FAERS Safety Report 25240013 (Version 1)
Quarter: 2025Q2

REPORT INFORMATION
  Report Type: Spontaneous
  Country: US (occurrence: US)
  Receive Date: 20250425
  Receipt Date: 20250425
  Transmission Date: 20250717
  Serious: No
  Sender: GLAND PHARMA LTD
  Company Number: US-GLANDPHARMA-US-2025GLNSPO01070

PATIENT
  Sex: Male

DRUGS (2)
  1. CARBOPLATIN [Suspect]
     Active Substance: CARBOPLATIN
     Indication: Chemotherapy
     Route: 065
  2. THIOTEPA [Suspect]
     Active Substance: THIOTEPA
     Indication: Chemotherapy
     Route: 065

REACTIONS (7)
  - Brain fog [Unknown]
  - Skin burning sensation [Unknown]
  - Blister [Unknown]
  - Memory impairment [Unknown]
  - Gait disturbance [Unknown]
  - Hypoacusis [Unknown]
  - Neuralgia [Unknown]
